FAERS Safety Report 5891732-7 (Version None)
Quarter: 2008Q3

REPORT INFORMATION
  Report Type: 
  Country: None (occurrence: None)
  Receive Date: 20080922
  Receipt Date: 20080910
  Transmission Date: 20090109
  Serious: Yes (Other)
  Sender: FDA-Public Use
  Company Number: US-PFIZER INC-2008059475

PATIENT
  Sex: Male
  Weight: 124.1 kg

DRUGS (3)
  1. CHANTIX [Suspect]
     Indication: SMOKING CESSATION THERAPY
     Dates: start: 20080629, end: 20080630
  2. BENADRYL [Suspect]
  3. PAXIL [Concomitant]

REACTIONS (2)
  - MANIA [None]
  - SOMNOLENCE [None]
